FAERS Safety Report 13426499 (Version 1)
Quarter: 2017Q2

REPORT INFORMATION
  Report Type: Spontaneous
  Country: US (occurrence: US)
  Receive Date: 20170411
  Receipt Date: 20170411
  Transmission Date: 20170830
  Serious: Yes (Hospitalization)
  Sender: FDA-Public Use
  Company Number: None

PATIENT
  Age: 16 Year
  Sex: Male
  Weight: 89.7 kg

DRUGS (4)
  1. MERCAPTOPURINE. [Suspect]
     Active Substance: MERCAPTOPURINE
     Dates: end: 20170404
  2. VINCRISTINE SULFATE. [Suspect]
     Active Substance: VINCRISTINE SULFATE
     Dates: end: 20170330
  3. METHOTREXATE. [Suspect]
     Active Substance: METHOTREXATE
     Dates: end: 20170330
  4. PREDNISONE. [Suspect]
     Active Substance: PREDNISONE
     Dates: end: 20170403

REACTIONS (18)
  - Nausea [None]
  - Blood bilirubin increased [None]
  - Abdominal pain [None]
  - Hepatomegaly [None]
  - Bilirubin conjugated increased [None]
  - Diarrhoea [None]
  - Gallbladder enlargement [None]
  - Cholecystitis [None]
  - Ill-defined disorder [None]
  - Fatigue [None]
  - Neutrophil count decreased [None]
  - Aspartate aminotransferase increased [None]
  - Alanine aminotransferase increased [None]
  - Jaundice [None]
  - Vomiting [None]
  - Clostridium test positive [None]
  - White blood cell count decreased [None]
  - Lipase increased [None]

NARRATIVE: CASE EVENT DATE: 20170407
